FAERS Safety Report 6359423-6 (Version None)
Quarter: 2009Q3

REPORT INFORMATION
  Report Type: 
  Country: None (occurrence: None)
  Receive Date: 20090917
  Receipt Date: 20090903
  Transmission Date: 20100115
  Serious: Yes (Other)
  Sender: FDA-Public Use
  Company Number: GB-MYLANLABS-2009S1015767

PATIENT
  Age: 59 Year
  Sex: Female

DRUGS (5)
  1. DOXYCYCLINE [Suspect]
     Indication: OSTEOMYELITIS
     Route: 048
     Dates: start: 20090211, end: 20090212
  2. DOXYCYCLINE [Suspect]
     Indication: WOUND INFECTION
     Route: 048
     Dates: start: 20090211, end: 20090212
  3. METFORMIN HCL [Concomitant]
     Indication: DRUG USE FOR UNKNOWN INDICATION
     Route: 048
  4. SIMVASTATIN [Concomitant]
     Indication: DRUG USE FOR UNKNOWN INDICATION
     Route: 048
  5. QUININE BISULFATE [Concomitant]
     Indication: DRUG USE FOR UNKNOWN INDICATION
     Route: 048

REACTIONS (1)
  - LIVER FUNCTION TEST ABNORMAL [None]
